FAERS Safety Report 4646778-3 (Version None)
Quarter: 2005Q2

REPORT INFORMATION
  Report Type: 
  Country: None (occurrence: None)
  Receive Date: 20050426
  Receipt Date: 20050426
  Transmission Date: 20051028
  Serious: Yes (Death)
  Sender: FDA-Public Use
  Company Number: None

PATIENT
  Sex: Male
  Weight: 105.2345 kg

DRUGS (6)
  1. GEMZAR [Suspect]
  2. REGLAN [Concomitant]
  3. VIOKASE [Concomitant]
  4. METFORMIN HCL [Concomitant]
  5. LANTIS [Concomitant]
  6. ASPIRIN [Concomitant]

REACTIONS (6)
  - DEHYDRATION [None]
  - DISEASE PROGRESSION [None]
  - FEEDING TUBE COMPLICATION [None]
  - HAEMODYNAMIC INSTABILITY [None]
  - INTESTINAL OBSTRUCTION [None]
  - RESPIRATORY FAILURE [None]
